FAERS Safety Report 4472931-8 (Version None)
Quarter: 2004Q4

REPORT INFORMATION
  Report Type: 
  Country: None (occurrence: None)
  Receive Date: 20041012
  Receipt Date: 20041012
  Transmission Date: 20050328
  Serious: Yes (Hospitalization)
  Sender: FDA-Public Use
  Company Number: None

PATIENT
  Age: 56 Year
  Sex: Male
  Weight: 102.1 kg

DRUGS (1)
  1. RITUXIMAB [Suspect]
     Indication: LYMPHOMA
     Dosage: 700 MG, 700 MG , IV
     Route: 042
     Dates: start: 20040810, end: 20040810

REACTIONS (2)
  - CHILLS [None]
  - DYSPNOEA [None]
